FAERS Safety Report 16916908 (Version 1)
Quarter: 2019Q4

REPORT INFORMATION
  Report Type: Report from Study
  Country: None (occurrence: BR)
  Receive Date: 20191015
  Receipt Date: 20191015
  Transmission Date: 20200122
  Serious: Yes (Hospitalization, Other)
  Sender: FDA-Public Use
  Company Number: BR-ABBVIE-19K-020-2959249-00

PATIENT
  Sex: Female

DRUGS (1)
  1. HUMIRA [Suspect]
     Active Substance: ADALIMUMAB
     Indication: RHEUMATOID ARTHRITIS
     Route: 058
     Dates: start: 20181011

REACTIONS (8)
  - Osteomyelitis [Unknown]
  - Cardiovascular disorder [Unknown]
  - Myocardial infarction [Unknown]
  - Aphasia [Not Recovered/Not Resolved]
  - Poor peripheral circulation [Unknown]
  - Femur fracture [Unknown]
  - Cerebrovascular accident [Recovering/Resolving]
  - Localised infection [Recovering/Resolving]

NARRATIVE: CASE EVENT DATE: 2019
